FAERS Safety Report 6182071-8 (Version None)
Quarter: 2009Q2

REPORT INFORMATION
  Report Type: 
  Country: None (occurrence: None)
  Receive Date: 20090507
  Receipt Date: 20090429
  Transmission Date: 20091009
  Serious: Yes (Other)
  Sender: FDA-Public Use
  Company Number: US-PFIZER INC-2006102249

PATIENT
  Sex: Female

DRUGS (16)
  1. PROVERA [Suspect]
     Indication: HORMONE REPLACEMENT THERAPY
     Dosage: 10 MG, UNK
     Dates: start: 19931101, end: 19940401
  2. PROVERA [Suspect]
     Indication: MENOPAUSAL SYMPTOMS
     Dosage: 2.5 MG, UNK
     Dates: start: 19940501, end: 19950501
  3. PROVERA [Suspect]
     Dosage: 10 MG, UNK
     Dates: start: 19950501, end: 19980401
  4. MEDROXYPROGESTERONE AND MEDROXYPROGESTERONE ACETATE [Suspect]
     Indication: HORMONE REPLACEMENT THERAPY
     Dosage: 10 MG, UNK
     Route: 048
     Dates: start: 19980401, end: 19990101
  5. MEDROXYPROGESTERONE AND MEDROXYPROGESTERONE ACETATE [Suspect]
     Indication: MENOPAUSAL SYMPTOMS
     Dosage: 10 MG, UNK
     Dates: start: 19990901, end: 19991201
  6. PREMARIN [Suspect]
     Indication: HORMONE REPLACEMENT THERAPY
     Dosage: 0.625 MG, UNK
     Route: 065
     Dates: start: 19940501, end: 19940901
  7. PREMARIN [Suspect]
     Indication: MENOPAUSAL SYMPTOMS
     Dosage: 0.3 MG, UNK
     Dates: start: 19941001, end: 19950501
  8. PREMARIN [Suspect]
     Dosage: 0.625 MG, UNK
     Dates: start: 19950501, end: 19980401
  9. ESTRATEST [Suspect]
     Indication: HORMONE REPLACEMENT THERAPY
     Dosage: UNK
     Route: 065
     Dates: start: 19990215, end: 20000115
  10. ESTRATEST [Suspect]
     Indication: MENOPAUSAL SYMPTOMS
  11. CYCRIN [Suspect]
     Indication: HORMONE REPLACEMENT THERAPY
     Dosage: 2.5 MG, UNK
     Route: 065
     Dates: start: 19990215, end: 19990416
  12. CYCRIN [Suspect]
     Indication: MENOPAUSAL SYMPTOMS
     Dosage: 2.5 MG, UNK
     Dates: start: 19990701, end: 20000930
  13. PREMPHASE 14/14 [Suspect]
     Indication: HORMONE REPLACEMENT THERAPY
     Dosage: 0.625 MG, UNK
     Route: 065
     Dates: start: 19991229, end: 20000329
  14. PREMPHASE 14/14 [Suspect]
     Indication: MENOPAUSAL SYMPTOMS
     Dosage: 5 MG, UNK
     Dates: start: 19991229, end: 20000329
  15. PREMPRO [Suspect]
     Indication: HORMONE REPLACEMENT THERAPY
     Dosage: 0.625 MG, UNK
     Route: 065
     Dates: start: 20000329, end: 20011001
  16. PREMPRO [Suspect]
     Indication: MENOPAUSAL SYMPTOMS
     Dosage: 5 MG, UNK
     Dates: start: 20000329, end: 20011001

REACTIONS (1)
  - BREAST CANCER [None]
